FAERS Safety Report 7160055-0 (Version None)
Quarter: 2010Q4

REPORT INFORMATION
  Report Type: 
  Country: None (occurrence: None)
  Receive Date: 20101214
  Receipt Date: 20091123
  Transmission Date: 20110411
  Serious: No
  Sender: FDA-Public Use
  Company Number: US-AMGEN-KDL376282

PATIENT

DRUGS (10)
  1. ENBREL [Suspect]
     Indication: PRODUCT USED FOR UNKNOWN INDICATION
     Dosage: 50 MG, QWK
     Route: 058
  2. METHOTREXATE [Concomitant]
     Dosage: 2.5 MG, UNK
  3. ATENOLOL [Concomitant]
     Dosage: 100 MG, UNK
  4. SIMVASTATIN [Concomitant]
     Dosage: 20 MG, UNK
  5. FOLIC ACID [Concomitant]
     Dosage: 1 MG, UNK
  6. VITAMIN B COMPLEX [Concomitant]
  7. FISH OIL [Concomitant]
  8. ZINC [Concomitant]
     Dosage: 30 MG, UNK
  9. CALCIUM WITH VITAMIN D [Concomitant]
  10. MAGNESIUM [Concomitant]
     Dosage: 300 MG, UNK

REACTIONS (2)
  - MYALGIA [None]
  - TENDON PAIN [None]
